FAERS Safety Report 24113596 (Version 1)
Quarter: 2024Q3

REPORT INFORMATION
  Report Type: Spontaneous
  Country: US (occurrence: US)
  Receive Date: 20240720
  Receipt Date: 20240720
  Transmission Date: 20241016
  Serious: Yes (Hospitalization, Other)
  Sender: ENDO
  Company Number: US-ENDO USA, INC.-2024-002899

PATIENT
  Age: 75 Year
  Sex: Female

DRUGS (4)
  1. KETALAR [Suspect]
     Active Substance: KETAMINE HYDROCHLORIDE
     Indication: Suicidal ideation
     Dosage: UNK UNKNOWN, INFUSION (ROUND 1)
     Route: 041
     Dates: start: 2023, end: 2023
  2. KETALAR [Suspect]
     Active Substance: KETAMINE HYDROCHLORIDE
     Indication: Depression
     Dosage: UNK UNKNOWN, INFUSION (ROUND 2)
     Route: 041
     Dates: start: 2023, end: 2023
  3. KETALAR [Suspect]
     Active Substance: KETAMINE HYDROCHLORIDE
     Dosage: UNK UNKNOWN, INFUSION (ROUND 3)
     Route: 041
     Dates: start: 2023, end: 2023
  4. KETALAR [Suspect]
     Active Substance: KETAMINE HYDROCHLORIDE
     Dosage: UNK UNKNOWN, INFUSION (ROUND 4)
     Route: 041
     Dates: start: 2023, end: 2023

REACTIONS (6)
  - Suicidal ideation [Recovered/Resolved]
  - Suicide attempt [Recovered/Resolved]
  - Depression [Recovered/Resolved]
  - Condition aggravated [Recovered/Resolved]
  - Off label use [Recovered/Resolved]
  - Drug ineffective for unapproved indication [Recovered/Resolved]

NARRATIVE: CASE EVENT DATE: 20230101
